FAERS Safety Report 4578349-1 (Version None)
Quarter: 2005Q1

REPORT INFORMATION
  Report Type: 
  Country: None (occurrence: None)
  Receive Date: 20050127
  Receipt Date: 20040903
  Transmission Date: 20050727
  Serious: No
  Sender: FDA-Public Use
  Company Number: USA040977300

PATIENT
  Age: 13 Year
  Sex: Male
  Weight: 44 kg

DRUGS (3)
  1. STRATTERA [Suspect]
     Indication: ATTENTION DEFICIT/HYPERACTIVITY DISORDER
     Dosage: 60 MG/L IN THE MORNING
     Dates: start: 20040701
  2. PAXIL [Concomitant]
  3. ADDERALL 10 [Concomitant]

REACTIONS (2)
  - FLATULENCE [None]
  - NAUSEA [None]
